FAERS Safety Report 24043182 (Version 1)
Quarter: 2024Q3

REPORT INFORMATION
  Report Type: Spontaneous
  Country: JP (occurrence: JP)
  Receive Date: 20240702
  Receipt Date: 20240702
  Transmission Date: 20241017
  Serious: Yes (Other)
  Sender: BRISTOL MYERS SQUIBB
  Company Number: JP-BRISTOL-MYERS SQUIBB COMPANY-2024-104984

PATIENT
  Age: 7 Decade
  Sex: Male

DRUGS (6)
  1. VIDAZA [Suspect]
     Active Substance: AZACITIDINE
     Indication: Acute myeloid leukaemia
     Route: 042
  2. VIDAZA [Suspect]
     Active Substance: AZACITIDINE
     Route: 042
  3. DEFITELIO [Suspect]
     Active Substance: DEFIBROTIDE SODIUM
     Indication: Venoocclusive liver disease
     Route: 042
  4. VENETOCLAX [Suspect]
     Active Substance: VENETOCLAX
     Indication: Acute myeloid leukaemia
  5. FLUDARA [Concomitant]
     Active Substance: FLUDARABINE PHOSPHATE
     Indication: Product used for unknown indication
  6. ALKERAN [Concomitant]
     Active Substance: MELPHALAN
     Indication: Product used for unknown indication

REACTIONS (8)
  - Febrile neutropenia [Unknown]
  - Sepsis [Unknown]
  - Staphylococcal infection [Unknown]
  - Corynebacterium infection [Unknown]
  - Blood bilirubin increased [Unknown]
  - Altered state of consciousness [Unknown]
  - Delirium [Unknown]
  - Cellulitis [Unknown]
